FAERS Safety Report 25251402 (Version 1)
Quarter: 2025Q2

REPORT INFORMATION
  Report Type: Report from Study
  Country: AT (occurrence: AT)
  Receive Date: 20250429
  Receipt Date: 20250429
  Transmission Date: 20250717
  Serious: Yes (Other)
  Sender: ABBVIE
  Company Number: AT-ABBVIE-6247435

PATIENT
  Age: 47 Year
  Sex: Male

DRUGS (1)
  1. RINVOQ [Suspect]
     Active Substance: UPADACITINIB
     Indication: Crohn^s disease
     Route: 048

REACTIONS (9)
  - Surgery [Unknown]
  - Crohn^s disease [Unknown]
  - Fatigue [Unknown]
  - Procedural pain [Unknown]
  - Anal incontinence [Unknown]
  - Sleep disorder [Unknown]
  - Eye inflammation [Unknown]
  - Dyschezia [Unknown]
  - Defaecation urgency [Unknown]
